FAERS Safety Report 18883829 (Version 6)
Quarter: 2022Q3

REPORT INFORMATION
  Report Type: Report from Study
  Country: KR (occurrence: KR)
  Receive Date: 20210212
  Receipt Date: 20220905
  Transmission Date: 20221026
  Serious: Yes (Hospitalization)
  Sender: FDA-Public Use
  Company Number: NVSC2021KR026747

PATIENT
  Age: 76 Year
  Sex: Male
  Weight: 56 kg

DRUGS (41)
  1. CANAKINUMAB [Suspect]
     Active Substance: CANAKINUMAB
     Indication: Non-small cell lung cancer
     Dosage: 200 MG, Q3W
     Route: 042
     Dates: start: 20191119, end: 20210121
  2. PEMBROLIZUMAB [Suspect]
     Active Substance: PEMBROLIZUMAB
     Indication: Non-small cell lung cancer
     Dosage: 200 MG
     Route: 042
     Dates: start: 20191119, end: 20210121
  3. PACLITAXEL [Suspect]
     Active Substance: PACLITAXEL
     Indication: Non-small cell lung cancer
     Dosage: 340 MG
     Route: 042
     Dates: start: 20191119
  4. CRESTOR [Concomitant]
     Active Substance: ROSUVASTATIN CALCIUM
     Indication: Peripheral arterial occlusive disease
     Dosage: UNK
     Route: 065
     Dates: start: 201908
  5. FURTMAN [Concomitant]
     Indication: Prophylaxis
     Dosage: UNK
     Route: 065
     Dates: start: 20191217
  6. CHOLINE ALFOSCERATE [Concomitant]
     Active Substance: CHOLINE ALFOSCERATE
     Indication: Delirium
     Dosage: UNK
     Route: 065
     Dates: start: 20200123
  7. ACETAMINOPHEN\TRAMADOL HYDROCHLORIDE [Concomitant]
     Active Substance: ACETAMINOPHEN\TRAMADOL HYDROCHLORIDE
     Indication: Arthralgia
     Dosage: UNK
     Route: 065
     Dates: start: 20200123
  8. CELEBREX [Concomitant]
     Active Substance: CELECOXIB
     Indication: Arthralgia
     Dosage: UNK
     Route: 065
     Dates: start: 20200317
  9. OXYCODONE HYDROCHLORIDE [Concomitant]
     Active Substance: OXYCODONE HYDROCHLORIDE
     Indication: Arthralgia
     Dosage: UNK
     Route: 065
     Dates: start: 20200317
  10. METRYNAL [Concomitant]
     Indication: Immune-mediated enterocolitis
     Dosage: UNK
     Route: 065
     Dates: start: 20201125, end: 20201127
  11. METRYNAL [Concomitant]
     Indication: Diarrhoea
  12. DEXTROSE [Concomitant]
     Active Substance: DEXTROSE
     Indication: Diarrhoea
     Dosage: UNK
     Route: 065
     Dates: start: 20201104, end: 20201104
  13. ASPIRIN [Concomitant]
     Active Substance: ASPIRIN
     Indication: Peripheral arterial occlusive disease
     Dosage: UNK
     Route: 065
     Dates: start: 201908
  14. PERKIN 25-100 [Concomitant]
     Indication: Paraesthesia
     Dosage: 100 MG
     Route: 065
     Dates: start: 20200513
  15. COUGH SYRUP [Concomitant]
     Active Substance: DEXTROMETHORPHAN HYDROBROMIDE\GUAIFENESIN
     Indication: Productive cough
     Dosage: 0.15 MG
     Route: 065
     Dates: start: 20200722
  16. TASNA [Concomitant]
     Indication: Diarrhoea
     Dosage: UNK
     Route: 065
     Dates: start: 20201126, end: 20201204
  17. MIRABEGRON [Concomitant]
     Active Substance: MIRABEGRON
     Indication: Benign prostatic hyperplasia
     Dosage: UNK
     Route: 065
     Dates: start: 20200722
  18. TAMS [Concomitant]
     Indication: Benign prostatic hyperplasia
     Dosage: UNK
     Route: 065
     Dates: start: 20200722
  19. ERDOSTEINE [Concomitant]
     Active Substance: ERDOSTEINE
     Indication: Productive cough
     Dosage: UNK
     Route: 065
     Dates: start: 20200915
  20. NEUSTATIN R [Concomitant]
     Indication: Peripheral arterial occlusive disease
     Dosage: UNK
     Route: 065
     Dates: start: 201908
  21. PLAVIX [Concomitant]
     Active Substance: CLOPIDOGREL BISULFATE
     Indication: Peripheral arterial occlusive disease
     Dosage: UNK
     Route: 065
     Dates: start: 201908
  22. XOTERNA [Concomitant]
     Indication: Chronic obstructive pulmonary disease
     Dosage: UNK
     Route: 065
     Dates: start: 20190923
  23. URSODIOL [Concomitant]
     Active Substance: URSODIOL
     Indication: Aspartate aminotransferase increased
     Dosage: UNK
     Route: 065
     Dates: start: 20191130
  24. URSODIOL [Concomitant]
     Active Substance: URSODIOL
     Indication: Alanine aminotransferase increased
  25. LYRICA [Concomitant]
     Active Substance: PREGABALIN
     Indication: Paraesthesia
     Dosage: UNK
     Route: 065
     Dates: start: 20191210
  26. CYMBALTA [Concomitant]
     Active Substance: DULOXETINE HYDROCHLORIDE
     Indication: Paraesthesia
     Dosage: UNK
     Route: 065
     Dates: start: 20191210
  27. CEFTRIAXONE [Concomitant]
     Active Substance: CEFTRIAXONE
     Indication: Infection prophylaxis
     Dosage: UNK
     Route: 065
     Dates: start: 20191217
  28. CEFTRIAXONE [Concomitant]
     Active Substance: CEFTRIAXONE
     Indication: Immune-mediated enterocolitis
     Dosage: UNK
     Route: 065
     Dates: start: 20201124, end: 20201202
  29. CEFTRIAXONE [Concomitant]
     Active Substance: CEFTRIAXONE
     Indication: Diarrhoea
  30. LIPILOU [Concomitant]
     Indication: Prophylaxis
     Dosage: UNK
     Route: 065
     Dates: start: 20201124
  31. HINECHOL [Concomitant]
     Indication: Benign prostatic hyperplasia
     Dosage: UNK
     Route: 065
     Dates: start: 20201125
  32. PREDNISOLONE [Concomitant]
     Active Substance: PREDNISOLONE
     Indication: Prophylaxis against diarrhoea
     Dosage: UNK
     Route: 065
     Dates: start: 20201104, end: 20201118
  33. PREDNISOLONE [Concomitant]
     Active Substance: PREDNISOLONE
     Indication: Diarrhoea
     Dosage: UNK
     Route: 065
     Dates: start: 20201230, end: 20210113
  34. NAFTOPIDIL [Concomitant]
     Active Substance: NAFTOPIDIL
     Indication: Benign prostatic hyperplasia
     Dosage: UNK
     Route: 065
     Dates: start: 20201125
  35. XARELTO [Concomitant]
     Active Substance: RIVAROXABAN
     Indication: Thrombosis prophylaxis
     Dosage: UNK
     Route: 065
     Dates: start: 20200507, end: 20210421
  36. FOTAGEL [Concomitant]
     Indication: Diarrhoea
     Dosage: UNK
     Route: 065
     Dates: start: 20201125, end: 20201204
  37. FOTAGEL [Concomitant]
     Dosage: UNK
     Route: 065
     Dates: start: 20210416, end: 20210511
  38. SMECTA [Concomitant]
     Active Substance: MONTMORILLONITE
     Indication: Diarrhoea
     Dosage: UNK
     Route: 065
     Dates: start: 20201015, end: 20201123
  39. EXELON PATCH [Concomitant]
     Active Substance: RIVASTIGMINE
     Indication: Delirium
     Dosage: UNK
     Route: 065
     Dates: start: 20201217
  40. CITOPCIN [Concomitant]
     Indication: Diarrhoea
     Dosage: UNK
     Route: 065
     Dates: start: 20201104, end: 20201118
  41. LOPERAMIDE [Concomitant]
     Active Substance: LOPERAMIDE
     Indication: Diarrhoea
     Dosage: UNK
     Route: 065
     Dates: start: 20201015, end: 20201207

REACTIONS (1)
  - Diarrhoea [Recovered/Resolved]

NARRATIVE: CASE EVENT DATE: 20210119
